FAERS Safety Report 6608321-9 (Version None)
Quarter: 2010Q1

REPORT INFORMATION
  Report Type: 
  Country: None (occurrence: None)
  Receive Date: 20100301
  Receipt Date: 20100128
  Transmission Date: 20100710
  Serious: No
  Sender: FDA-Public Use
  Company Number: US-BAYER-200942175NA

PATIENT
  Sex: Male

DRUGS (5)
  1. BETASERON [Suspect]
     Indication: MULTIPLE SCLEROSIS
     Dosage: TOTAL DAILY DOSE: 0.3 MG
     Route: 058
  2. FOLATE B12 [Concomitant]
  3. AMBIEN CR [Concomitant]
  4. CLARITIN [Concomitant]
  5. FLONASE [Concomitant]

REACTIONS (1)
  - BLOOD TESTOSTERONE DECREASED [None]
